FAERS Safety Report 5941659-7 (Version None)
Quarter: 2008Q4

REPORT INFORMATION
  Report Type: 
  Country: None (occurrence: None)
  Receive Date: 20081031
  Receipt Date: 20081028
  Transmission Date: 20090506
  Serious: Yes (Other)
  Sender: FDA-Public Use
  Company Number: 036011

PATIENT
  Sex: Female

DRUGS (8)
  1. AMIODARONE HCL [Suspect]
     Indication: ATRIAL FIBRILLATION
     Dosage: SEE IMAGE
     Route: 048
     Dates: start: 20071001
  2. ACTONEL [Suspect]
     Indication: OSTEOPOROSIS
     Dates: start: 20070101
  3. TOPROL-XL [Concomitant]
  4. DIOVAN [Concomitant]
  5. AMLODIPINE BESYLATE [Concomitant]
  6. ZOCOR [Concomitant]
  7. FEMARA [Concomitant]
  8. WARFARIN SODIUM [Concomitant]

REACTIONS (3)
  - ATRIAL FIBRILLATION [None]
  - DISEASE RECURRENCE [None]
  - DRUG LEVEL DECREASED [None]
